FAERS Safety Report 5376542-1 (Version None)
Quarter: 2007Q2

REPORT INFORMATION
  Report Type: 
  Country: None (occurrence: None)
  Receive Date: 20070629
  Receipt Date: 20070620
  Transmission Date: 20071010
  Serious: Yes (Hospitalization)
  Sender: FDA-Public Use
  Company Number: 2007SP003494

PATIENT
  Age: 10 Year
  Sex: Female

DRUGS (2)
  1. TEMODAL [Suspect]
     Indication: BRAIN NEOPLASM
     Dosage: 120 MG; QD; PO
     Route: 048
     Dates: start: 20060825, end: 20061212
  2. VINCRISTINE [Suspect]
     Indication: DRUG USE FOR UNKNOWN INDICATION
     Dosage: 1.5 MG/M2

REACTIONS (5)
  - BACK PAIN [None]
  - FALL [None]
  - MENINGITIS CRYPTOCOCCAL [None]
  - MUSCULOSKELETAL STIFFNESS [None]
  - OPPORTUNISTIC INFECTION [None]
